FAERS Safety Report 16794735 (Version 1)
Quarter: 2019Q3

REPORT INFORMATION
  Report Type: Spontaneous
  Country: DE (occurrence: DE)
  Receive Date: 20190911
  Receipt Date: 20190911
  Transmission Date: 20191005
  Serious: Yes (Hospitalization)
  Sender: FDA-Public Use
  Company Number: PHHY2019DE209443

PATIENT
  Sex: Female

DRUGS (1)
  1. ANASTROZOL ? 1 A PHARMA [Suspect]
     Active Substance: ANASTROZOLE
     Indication: BREAST CANCER
     Dosage: UNK (A QUARTER OF 1MG)
     Route: 065

REACTIONS (2)
  - Wrong technique in product usage process [Unknown]
  - Hypertension [Unknown]
